FAERS Safety Report 7726493-X (Version None)
Quarter: 2011Q3

REPORT INFORMATION
  Report Type: 
  Country: None (occurrence: None)
  Receive Date: 20110902
  Receipt Date: 20110822
  Transmission Date: 20111222
  Serious: Yes (Hospitalization, Other)
  Sender: FDA-Public Use
  Company Number: PHHY2011JP63190

PATIENT
  Sex: Female
  Weight: 82 kg

DRUGS (7)
  1. WARFARIN SODIUM [Concomitant]
     Dosage: 5 MG, UNK
  2. FAMOTIDINE [Concomitant]
     Dosage: 40 MG, UNK
     Route: 048
  3. ADALAT [Concomitant]
     Dosage: 60 MG, UNK
     Route: 048
  4. CANDESARTAN CILEXETIL [Concomitant]
     Dosage: 12 MG, UNK
  5. CARVEDILOL [Concomitant]
     Dosage: 20 MG, UNK
     Route: 048
  6. DOXAZOSIN MESYLATE [Concomitant]
     Dosage: 4 MG, UNK
     Route: 048
  7. TEGRETOL [Suspect]
     Indication: EPILEPSY
     Dosage: 200 MG, DAILY
     Route: 048

REACTIONS (9)
  - BLOOD LACTATE DEHYDROGENASE INCREASED [None]
  - BLOOD HYPOSMOSIS [None]
  - HAEMOGLOBIN DECREASED [None]
  - SPINAL OSTEOARTHRITIS [None]
  - ARTHRITIS [None]
  - URINE SODIUM INCREASED [None]
  - INAPPROPRIATE ANTIDIURETIC HORMONE SECRETION [None]
  - BLOOD SODIUM DECREASED [None]
  - BLOOD ALKALINE PHOSPHATASE INCREASED [None]
